FAERS Safety Report 5032954-7 (Version None)
Quarter: 2006Q2

REPORT INFORMATION
  Report Type: 
  Country: None (occurrence: None)
  Receive Date: 20060622
  Receipt Date: 20060614
  Transmission Date: 20061013
  Serious: Yes (Hospitalization)
  Sender: FDA-Public Use
  Company Number: DE-SANOFI-SYNTHELABO-A04200600627

PATIENT
  Sex: Male
  Weight: 69 kg

DRUGS (8)
  1. QUENSYL [Suspect]
     Indication: RHEUMATOID ARTHRITIS
     Route: 048
     Dates: start: 20030901
  2. ANALGETIC DRUG NOS [Concomitant]
     Indication: PAIN
     Dosage: UNK
     Route: 048
  3. FOLIC ACID [Concomitant]
     Indication: DRUG USE FOR UNKNOWN INDICATION
     Dosage: 2 TABLETS EVERY FRIDAY
     Route: 048
  4. SULFASALAZINE [Concomitant]
     Indication: RHEUMATOID ARTHRITIS
     Dosage: UNK
     Route: 065
  5. DECORTIN [Suspect]
     Indication: DRUG USE FOR UNKNOWN INDICATION
     Route: 048
     Dates: end: 20060101
  6. DECORTIN [Suspect]
     Route: 048
     Dates: start: 20060101
  7. METEX [Suspect]
     Indication: RHEUMATOID ARTHRITIS
     Route: 058
     Dates: start: 20030401, end: 20060101
  8. HUMIRA [Suspect]
     Indication: RHEUMATOID ARTHRITIS
     Route: 058
     Dates: start: 20041001, end: 20060301

REACTIONS (7)
  - ABSCESS [None]
  - ARTHRITIS BACTERIAL [None]
  - ARTHRITIS SALMONELLA [None]
  - DIARRHOEA [None]
  - DRUG INTOLERANCE [None]
  - OSTEOMYELITIS [None]
  - RASH [None]
